FAERS Safety Report 8163499-3 (Version None)
Quarter: 2012Q1

REPORT INFORMATION
  Report Type: 
  Country: None (occurrence: None)
  Receive Date: 20120224
  Receipt Date: 20120213
  Transmission Date: 20120608
  Serious: Yes (Hospitalization)
  Sender: FDA-Public Use
  Company Number: AU-MERCK-1202USA01791

PATIENT
  Age: 70 Year
  Sex: Male

DRUGS (14)
  1. CALCIUM CARBONATE [Concomitant]
     Route: 065
  2. CYCLOSPORINE [Suspect]
     Route: 065
     Dates: end: 20111110
  3. MINOCYCLINE HYDROCHLORIDE [Concomitant]
     Route: 065
  4. OMEGA-3 MARINE TRIGLYCERIDES [Concomitant]
     Route: 065
  5. PANTOPRAZOLE [Concomitant]
     Route: 065
  6. AMLODIPINE BESYLATE AND PERINDOPRIL ARGININE [Concomitant]
     Route: 065
  7. PHENERGAN HCL [Concomitant]
     Route: 065
  8. VYTORIN [Concomitant]
     Route: 048
  9. LERCANIDIPINE [Concomitant]
     Route: 065
  10. ZOCOR [Suspect]
     Route: 048
  11. CHOLECALCIFEROL [Concomitant]
     Route: 065
  12. VITAMINS (UNSPECIFIED) [Concomitant]
     Route: 065
  13. FEXOFENADINE HYDROCHLORIDE [Concomitant]
     Route: 065
  14. PROPYLENE GLYCOL [Concomitant]
     Route: 065

REACTIONS (3)
  - RHABDOMYOLYSIS [None]
  - LIVER FUNCTION TEST ABNORMAL [None]
  - RENAL FAILURE ACUTE [None]
